FAERS Safety Report 18529627 (Version 4)
Quarter: 2021Q3

REPORT INFORMATION
  Report Type: Report from Study
  Country: CA (occurrence: CA)
  Receive Date: 20201120
  Receipt Date: 20210930
  Transmission Date: 20211014
  Serious: Yes (Other)
  Sender: FDA-Public Use
  Company Number: CA-TAKEDA-2020TUS051592

PATIENT
  Age: 70 Year
  Sex: Male

DRUGS (13)
  1. IXAZOMIB [Suspect]
     Active Substance: IXAZOMIB
     Dosage: 3 MILLIGRAM, Q2WEEKS
     Route: 048
     Dates: start: 20201119
  2. DEXAMETHASONE. [Suspect]
     Active Substance: DEXAMETHASONE
     Dosage: 12 MILLIGRAM, 1/WEEK
     Route: 065
     Dates: start: 20201217
  3. LUTEIN VISION PLUS [Concomitant]
     Dosage: UNK, QD
     Route: 048
  4. CICLESONIDE [Concomitant]
     Active Substance: CICLESONIDE
     Dosage: UNK UNK, QD
     Route: 045
  5. DYMISTA [Concomitant]
     Active Substance: AZELASTINE HYDROCHLORIDE\FLUTICASONE PROPIONATE
     Dosage: UNK
     Route: 045
  6. LATANOPROST. [Concomitant]
     Active Substance: LATANOPROST
     Dosage: UNK, QD
     Route: 047
  7. ACYCLOVIR [ACICLOVIR] [Concomitant]
     Active Substance: ACYCLOVIR
     Dosage: 400 MILLIGRAM, BID
     Route: 048
     Dates: start: 20171207
  8. IXAZOMIB [Suspect]
     Active Substance: IXAZOMIB
     Indication: PLASMA CELL MYELOMA
     Dosage: 2.3 MILLIGRAM
     Route: 048
     Dates: start: 20171207
  9. DEXAMETHASONE. [Suspect]
     Active Substance: DEXAMETHASONE
     Indication: PRODUCT USED FOR UNKNOWN INDICATION
     Dosage: 20 MILLIGRAM, 1/WEEK
     Route: 048
     Dates: start: 20201217
  10. SAPHRIS [Concomitant]
     Active Substance: ASENAPINE MALEATE
     Dosage: 2.5 MILLIGRAM, QD
     Route: 060
  11. PANTOPRAZOLE SODIUM. [Concomitant]
     Active Substance: PANTOPRAZOLE SODIUM
     Dosage: 40 MILLIGRAM, QD
     Route: 048
     Dates: start: 20201217
  12. ESCITALOPRAM [Concomitant]
     Active Substance: ESCITALOPRAM OXALATE
     Dosage: 10 MILLIGRAM, QD
     Route: 048
  13. AZARGA [Concomitant]
     Active Substance: BRINZOLAMIDE\TIMOLOL MALEATE
     Dosage: UNK, BID
     Route: 047

REACTIONS (4)
  - Insomnia [Unknown]
  - Nasal congestion [Unknown]
  - Plasma cell myeloma [Not Recovered/Not Resolved]
  - Diarrhoea [Recovered/Resolved]

NARRATIVE: CASE EVENT DATE: 20210106
